FAERS Safety Report 25343853 (Version 1)
Quarter: 2025Q2

REPORT INFORMATION
  Report Type: Spontaneous
  Country: US (occurrence: US)
  Receive Date: 20250521
  Receipt Date: 20250521
  Transmission Date: 20250716
  Serious: No
  Sender: SANOFI AVENTIS
  Company Number: US-SA-2025SA143494

PATIENT
  Sex: Female
  Weight: 97.73 kg

DRUGS (15)
  1. DUPIXENT [Suspect]
     Active Substance: DUPILUMAB
     Route: 058
  2. DUPIXENT [Suspect]
     Active Substance: DUPILUMAB
     Dosage: 300 MG, QOW
     Route: 058
  3. JARDIANCE [Concomitant]
     Active Substance: EMPAGLIFLOZIN
  4. METOLAZONE [Concomitant]
     Active Substance: METOLAZONE
  5. POTASSIUM CHLORIDE [Concomitant]
     Active Substance: POTASSIUM CHLORIDE
  6. ELIQUIS [Concomitant]
     Active Substance: APIXABAN
  7. TRELEGY ELLIPTA [Concomitant]
     Active Substance: FLUTICASONE FUROATE\UMECLIDINIUM BROMIDE\VILANTEROL TRIFENATATE
  8. GABAPENTIN [Concomitant]
     Active Substance: GABAPENTIN
  9. TACROLIMUS [Concomitant]
     Active Substance: TACROLIMUS
  10. ALPRAZOLAM [Concomitant]
     Active Substance: ALPRAZOLAM
  11. FUROSEMIDE [Concomitant]
     Active Substance: FUROSEMIDE
  12. SERTRALINE [Concomitant]
     Active Substance: SERTRALINE HYDROCHLORIDE
  13. PERMETHRIN [Concomitant]
     Active Substance: PERMETHRIN
  14. PREGABALIN [Concomitant]
     Active Substance: PREGABALIN
  15. SPIRONOLACTONE [Concomitant]
     Active Substance: SPIRONOLACTONE

REACTIONS (5)
  - Blood potassium decreased [Unknown]
  - Renal disorder [Unknown]
  - Skin haemorrhage [Not Recovered/Not Resolved]
  - Pruritus [Not Recovered/Not Resolved]
  - Incorrect dose administered [Unknown]
